FAERS Safety Report 4332597-4 (Version None)
Quarter: 2004Q1

REPORT INFORMATION
  Report Type: 
  Country: None (occurrence: None)
  Receive Date: 20040330
  Receipt Date: 20040317
  Transmission Date: 20041129
  Serious: Yes (Hospitalization)
  Sender: FDA-Public Use
  Company Number: 2004-UK-00263UK

PATIENT
  Age: 55 Year
  Sex: Male

DRUGS (4)
  1. MOBIC [Suspect]
     Indication: NECK PAIN
     Dosage: 1 IN THE PO
     Route: 048
     Dates: end: 20031201
  2. NUROFEN (IBUPROFEN) (NR) [Suspect]
     Dosage: UP TO 4 PER PO
     Route: 048
  3. CO-DYDRAMOL (PARAMOL-118) (NR) [Concomitant]
  4. HEDEX (PARACETAMOL) (NR) [Concomitant]

REACTIONS (8)
  - ASTHENIA [None]
  - CIRCULATORY COLLAPSE [None]
  - DIZZINESS [None]
  - DIZZINESS POSTURAL [None]
  - GASTRIC ULCER [None]
  - HAEMATEMESIS [None]
  - HAEMOGLOBIN DECREASED [None]
  - MELAENA [None]
